FAERS Safety Report 9630574 (Version 1)
Quarter: 2013Q4

REPORT INFORMATION
  Report Type: Spontaneous
  Country: US (occurrence: None)
  Receive Date: 20131016
  Receipt Date: 20131016
  Transmission Date: 20140711
  Serious: Yes (Disabling, Other)
  Sender: FDA-Public Use
  Company Number: None

PATIENT
  Age: 4 Month
  Sex: Male
  Weight: 6.8 kg

DRUGS (1)
  1. HYLAND^S TEETHING TABLETS [Suspect]
     Indication: TEETHING
     Dosage: 2 PILLS
     Route: 048
     Dates: start: 20070820, end: 20091020

REACTIONS (8)
  - Staring [None]
  - Asterixis [None]
  - Food aversion [None]
  - Speech disorder developmental [None]
  - Fine motor delay [None]
  - Autism [None]
  - Petit mal epilepsy [None]
  - Aphasia [None]
